FAERS Safety Report 5698556-4 (Version None)
Quarter: 2008Q2

REPORT INFORMATION
  Report Type: 
  Country: None (occurrence: None)
  Receive Date: 20080408
  Receipt Date: 20061012
  Transmission Date: 20081010
  Serious: No
  Sender: FDA-Public Use
  Company Number: US-BAYER-US-2006-030776

PATIENT
  Age: 51 Year
  Sex: Female

DRUGS (5)
  1. CLIMARA [Suspect]
     Indication: MENOPAUSAL SYMPTOMS PROPHYLAXIS
     Route: 062
     Dates: start: 20050101
  2. CLIMARA [Suspect]
     Route: 062
     Dates: start: 20040101, end: 20050101
  3. CLIMARA [Suspect]
     Route: 062
     Dates: start: 20030101, end: 20040101
  4. BENICAR [Concomitant]
  5. CELEBREX [Concomitant]

REACTIONS (1)
  - APPLICATION SITE RASH [None]
